FAERS Safety Report 8483478-6 (Version None)
Quarter: 2012Q3

REPORT INFORMATION
  Report Type: 
  Country: None (occurrence: None)
  Receive Date: 20120702
  Receipt Date: 20120620
  Transmission Date: 20120928
  Serious: Yes (Other)
  Sender: FDA-Public Use
  Company Number: CH-ELI_LILLY_AND_COMPANY-CH201206007895

PATIENT
  Age: 74 Year
  Sex: Female
  Weight: 75 kg

DRUGS (11)
  1. FENTANYL CITRATE [Concomitant]
     Dosage: 25 UG, QD
     Dates: start: 20120520, end: 20120609
  2. CYMBALTA [Suspect]
     Indication: PAIN
     Dosage: 30 MG, QD
     Route: 048
     Dates: start: 20120614
  3. METFORMIN HCL [Concomitant]
     Indication: TYPE 2 DIABETES MELLITUS
     Dosage: UNK
     Route: 048
  4. MORPHINE [Concomitant]
     Dosage: UNK, PRN
  5. FENTANYL CITRATE [Concomitant]
     Dosage: 50 UG, QD
     Dates: start: 20120610, end: 20120619
  6. ATORVASTATIN CALCIUM [Concomitant]
     Indication: HYPERCHOLESTEROLAEMIA
     Dosage: 40 MG, QD
     Route: 048
  7. ACETAMINOPHEN [Concomitant]
     Dosage: UNK, PRN
  8. NEBIVOLOL HCL [Concomitant]
     Indication: HYPERTENSION
     Dosage: 5 MG, QD
     Route: 048
  9. AMILORIDE HCL AND HYDROCHLOROTHIAZIDE [Concomitant]
     Indication: HYPERTENSION
     Dosage: UNK
     Route: 048
  10. RAMIPRIL [Concomitant]
     Indication: HYPERTENSION
     Dosage: 10 MG, QD
     Route: 048
  11. FENTANYL CITRATE [Concomitant]
     Dosage: 75 UG, QD
     Dates: start: 20120620

REACTIONS (6)
  - DRUG INTERACTION [None]
  - NAUSEA [None]
  - SEROTONIN SYNDROME [None]
  - PRURITUS [None]
  - SEDATION [None]
  - RESTLESS LEGS SYNDROME [None]
